FAERS Safety Report 7929051-7 (Version None)
Quarter: 2011Q4

REPORT INFORMATION
  Report Type: 
  Country: None (occurrence: None)
  Receive Date: 20111119
  Receipt Date: 20111114
  Transmission Date: 20120403
  Serious: Yes (Other)
  Sender: FDA-Public Use
  Company Number: US-AMGEN-USASP2011036685

PATIENT
  Sex: Female

DRUGS (1)
  1. ENBREL [Suspect]
     Indication: RHEUMATOID ARTHRITIS
     Dosage: 50 MG, 2 TIMES/WK
     Dates: start: 20030501

REACTIONS (7)
  - TEARFULNESS [None]
  - RHEUMATOID ARTHRITIS [None]
  - FRUSTRATION [None]
  - STRESS [None]
  - LATEX ALLERGY [None]
  - INFECTION [None]
  - INCORRECT STORAGE OF DRUG [None]
